FAERS Safety Report 23048173 (Version 2)
Quarter: 2024Q4

REPORT INFORMATION
  Report Type: Spontaneous
  Country: US (occurrence: US)
  Receive Date: 20231010
  Receipt Date: 20241008
  Transmission Date: 20250115
  Serious: No
  Sender: RANBAXY
  Company Number: US-SUN PHARMACEUTICAL INDUSTRIES LTD-2023R1-395433

PATIENT
  Sex: Female

DRUGS (1)
  1. CEQUA [Suspect]
     Active Substance: CYCLOSPORINE
     Indication: Dry eye
     Dosage: UNK
     Route: 065

REACTIONS (8)
  - Drug ineffective [Unknown]
  - Expired product administered [Unknown]
  - Eye pain [Unknown]
  - Eye haemorrhage [Unknown]
  - Inability to afford medication [Unknown]
  - Product use issue [Unknown]
  - Ocular hyperaemia [Unknown]
  - Lacrimation increased [Unknown]
